FAERS Safety Report 9349907 (Version 1)
Quarter: 2013Q2

REPORT INFORMATION
  Report Type: Spontaneous
  Country: US (occurrence: US)
  Receive Date: 20130614
  Receipt Date: 20130614
  Transmission Date: 20140414
  Serious: Yes (Other)
  Sender: FDA-Public Use
  Company Number: PHHY2013US058616

PATIENT
  Age: 28 Year
  Sex: Female

DRUGS (5)
  1. HYDRALAZINE [Suspect]
     Indication: BLOOD PRESSURE ABNORMAL
  2. LABETALOL [Suspect]
     Indication: BLOOD PRESSURE ABNORMAL
  3. MAGNESIUM [Concomitant]
     Indication: PRE-ECLAMPSIA
     Dosage: 4 G
  4. MAGNESIUM [Concomitant]
     Dosage: 2 G PER HR
  5. DEXAMETHASONE [Concomitant]
     Indication: DRUG THERAPY

REACTIONS (5)
  - Premature delivery [Unknown]
  - Hypermagnesaemia [Unknown]
  - Glomerulosclerosis [Unknown]
  - Blood pressure inadequately controlled [Unknown]
  - Maternal exposure during pregnancy [Unknown]
